FAERS Safety Report 9018110 (Version 1)
Quarter: 2013Q1

REPORT INFORMATION
  Report Type: Spontaneous
  Country: US (occurrence: None)
  Receive Date: 20130110
  Receipt Date: 20130110
  Transmission Date: 20140127
  Serious: No
  Sender: FDA-Public Use
  Company Number: None

PATIENT
  Age: 37 Year
  Sex: Male

DRUGS (4)
  1. ETRAVIRINE [Suspect]
     Dates: start: 20080828, end: 20090619
  2. RITONAVIR [Suspect]
     Dates: start: 20080828, end: 20090619
  3. RALTEGRAVIR [Suspect]
     Dates: start: 20080828, end: 20090619
  4. DARUNAVIR [Suspect]
     Dates: start: 20080828, end: 20090619

REACTIONS (9)
  - Cholecystitis [None]
  - Meningitis [None]
  - Cholestasis [None]
  - Renal failure [None]
  - Drug-induced liver injury [None]
  - Lactic acidosis [None]
  - Respiratory failure [None]
  - Shock [None]
  - Intestinal ischaemia [None]
